FAERS Safety Report 17516609 (Version 1)
Quarter: 2020Q1

REPORT INFORMATION
  Report Type: Spontaneous
  Country: US (occurrence: US)
  Receive Date: 20200306
  Receipt Date: 20200306
  Transmission Date: 20200409
  Serious: No
  Sender: FDA-Public Use
  Company Number: None

PATIENT
  Age: 13 Year
  Sex: Male
  Weight: 78.75 kg

DRUGS (1)
  1. SINGULAIR [Suspect]
     Active Substance: MONTELUKAST SODIUM
     Indication: HYPERSENSITIVITY
     Dates: start: 20070101, end: 20190501

REACTIONS (6)
  - Myalgia [None]
  - Asthenia [None]
  - Memory impairment [None]
  - Nausea [None]
  - Tension headache [None]
  - Migraine [None]

NARRATIVE: CASE EVENT DATE: 20190101
